FAERS Safety Report 5842914-1 (Version None)
Quarter: 2008Q3

REPORT INFORMATION
  Report Type: 
  Country: None (occurrence: None)
  Receive Date: 20080813
  Receipt Date: 20080811
  Transmission Date: 20090109
  Serious: Yes (Life-Threatening)
  Sender: FDA-Public Use
  Company Number: JP-BRISTOL-MYERS SQUIBB COMPANY-14163406

PATIENT
  Age: 26 Year
  Sex: Male

DRUGS (10)
  1. LASTET [Suspect]
     Indication: TESTIS CANCER
     Dosage: THERAPY DATES:DR 200MG/M2/DAY 15OCT07-19OCT2007
     Route: 042
     Dates: start: 20071105, end: 20071130
  2. BLEO [Suspect]
     Indication: TESTIS CANCER
     Dosage: STARTED ON 15-OCT-07
     Route: 042
     Dates: start: 20071015, end: 20071210
  3. RANDA [Suspect]
     Indication: TESTIS CANCER
     Dosage: STARTED ON 15-OCT-07
     Route: 042
     Dates: start: 20071115, end: 20071130
  4. FIRSTCIN [Concomitant]
     Route: 042
     Dates: start: 20071023, end: 20071124
  5. PANSPORIN [Concomitant]
     Route: 042
     Dates: start: 20071116, end: 20071120
  6. PRODIF [Concomitant]
     Route: 042
     Dates: start: 20071030, end: 20071127
  7. MINOCYCLINE HCL [Concomitant]
     Route: 042
     Dates: start: 20071124, end: 20071213
  8. FUNGUARD [Concomitant]
     Route: 042
     Dates: start: 20071208, end: 20071218
  9. PASIL [Concomitant]
     Route: 042
     Dates: start: 20071214, end: 20071222
  10. NEUTROGIN [Concomitant]
     Route: 058
     Dates: start: 20071027

REACTIONS (3)
  - BONE MARROW FAILURE [None]
  - ORGANISING PNEUMONIA [None]
  - PULMONARY FIBROSIS [None]
